FAERS Safety Report 18639398 (Version 15)
Quarter: 2025Q1

REPORT INFORMATION
  Report Type: Report from Study
  Country: US (occurrence: US)
  Receive Date: 20201219
  Receipt Date: 20250317
  Transmission Date: 20250409
  Serious: Yes (Hospitalization, Other)
  Sender: TAKEDA
  Company Number: US-TAKEDA-US201914260

PATIENT
  Age: 49 Year
  Sex: Female

DRUGS (4)
  1. HUMAN IMMUNOGLOBULIN G [Suspect]
     Active Substance: HUMAN IMMUNOGLOBULIN G
     Indication: Primary immunodeficiency syndrome
  2. HUMAN IMMUNOGLOBULIN G [Suspect]
     Active Substance: HUMAN IMMUNOGLOBULIN G
     Dosage: 10 GRAM, 1/WEEK
  3. HUMAN IMMUNOGLOBULIN G [Suspect]
     Active Substance: HUMAN IMMUNOGLOBULIN G
     Dosage: 7.5 GRAM, 1/WEEK
  4. HUMAN IMMUNOGLOBULIN G [Suspect]
     Active Substance: HUMAN IMMUNOGLOBULIN G

REACTIONS (19)
  - COVID-19 [Recovering/Resolving]
  - Sinusitis [Unknown]
  - Gastrooesophageal reflux disease [Unknown]
  - Weight decreased [Unknown]
  - Dysphagia [Unknown]
  - Neuralgia [Unknown]
  - Insurance issue [Unknown]
  - Nightmare [Unknown]
  - Incorrect dose administered [Unknown]
  - Vitamin B12 deficiency [Unknown]
  - Product dose omission issue [Unknown]
  - Illness [Unknown]
  - Asthma [Unknown]
  - Tremor [Recovered/Resolved]
  - Back pain [Unknown]
  - Infusion site pain [Recovered/Resolved]
  - Somnolence [Unknown]
  - Vertigo [Unknown]
  - Infusion site swelling [Unknown]

NARRATIVE: CASE EVENT DATE: 20250312
